FAERS Safety Report 25173016 (Version 1)
Quarter: 2025Q2

REPORT INFORMATION
  Report Type: Spontaneous
  Country: US (occurrence: None)
  Receive Date: 20250408
  Receipt Date: 20250408
  Transmission Date: 20250716
  Serious: Yes (Life-Threatening, Hospitalization)
  Sender: FDA-CTU
  Company Number: None

PATIENT
  Age: 63 Year
  Sex: Female
  Weight: 87.3 kg

DRUGS (2)
  1. OZEMPIC [Suspect]
     Active Substance: SEMAGLUTIDE
     Indication: Diabetes mellitus
     Route: 030
     Dates: start: 20250325, end: 20250401
  2. OZEMPIC [Concomitant]
     Active Substance: SEMAGLUTIDE
     Dates: start: 20250325, end: 20250401

REACTIONS (4)
  - Swelling face [None]
  - Erythema [None]
  - Rash [None]
  - Pruritus [None]

NARRATIVE: CASE EVENT DATE: 20250407
